FAERS Safety Report 15644878 (Version 1)
Quarter: 2018Q4

REPORT INFORMATION
  Report Type: Spontaneous
  Country: US (occurrence: US)
  Receive Date: 20181121
  Receipt Date: 20181121
  Transmission Date: 20190205
  Serious: No
  Sender: FDA-Public Use
  Company Number: US-BRISTOL-MYERS SQUIBB COMPANY-BMS-2018-109770

PATIENT
  Sex: Female

DRUGS (1)
  1. KENALOG-10 [Suspect]
     Active Substance: TRIAMCINOLONE ACETONIDE
     Indication: KELOID SCAR
     Dosage: 12 MG, UNK
     Route: 059
     Dates: start: 201802, end: 201803

REACTIONS (3)
  - Skin hyperpigmentation [Unknown]
  - Atrophy [Unknown]
  - Scar [Unknown]
